FAERS Safety Report 11643038 (Version 2)
Quarter: 2015Q4

REPORT INFORMATION
  Report Type: Spontaneous
  Country: US (occurrence: US)
  Receive Date: 20151020
  Receipt Date: 20151116
  Transmission Date: 20160304
  Serious: No
  Sender: FDA-Public Use
  Company Number: US-AMGEN-USASP2015106824

PATIENT
  Age: 18 Year
  Sex: Female

DRUGS (3)
  1. ENBREL [Suspect]
     Active Substance: ETANERCEPT
     Indication: RHEUMATOID ARTHRITIS
     Dosage: 50 MG, QWK
     Route: 058
  2. MOBIC [Concomitant]
     Active Substance: MELOXICAM
     Dosage: UNK
     Dates: start: 20150804, end: 20151009
  3. METHOTREXATE [Concomitant]
     Active Substance: METHOTREXATE
     Dosage: UNK
     Dates: start: 20150804, end: 20151009

REACTIONS (11)
  - Frustration [Unknown]
  - Nervousness [Unknown]
  - Anger [Unknown]
  - Irritability [Unknown]
  - Stress [Unknown]
  - Injection site reaction [Unknown]
  - Condition aggravated [Unknown]
  - Injection site pain [Unknown]
  - Musculoskeletal stiffness [Recovered/Resolved]
  - Injection site bruising [Unknown]
  - Injection site erythema [Unknown]
